FAERS Safety Report 6479247-9 (Version None)
Quarter: 2009Q4

REPORT INFORMATION
  Report Type: 
  Country: None (occurrence: None)
  Receive Date: 20091207
  Receipt Date: 20090218
  Transmission Date: 20100525
  Serious: No
  Sender: FDA-Public Use
  Company Number: US-AMGEN-KDL334502

PATIENT
  Sex: Female

DRUGS (5)
  1. ENBREL [Suspect]
     Indication: PSORIATIC ARTHROPATHY
     Route: 058
     Dates: start: 20070101
  2. ENBREL [Suspect]
     Indication: PSORIASIS
  3. SULFASALAZINE [Concomitant]
     Route: 048
     Dates: start: 20070701
  4. METHOTREXATE [Concomitant]
     Route: 048
     Dates: start: 20060101
  5. PLAQUENIL [Concomitant]
     Route: 048
     Dates: start: 20080201

REACTIONS (2)
  - PSORIASIS [None]
  - PSORIATIC ARTHROPATHY [None]
